FAERS Safety Report 11185383 (Version 3)
Quarter: 2015Q3

REPORT INFORMATION
  Report Type: Spontaneous
  Country: IE (occurrence: IE)
  Receive Date: 20150612
  Receipt Date: 20150814
  Transmission Date: 20151125
  Serious: Yes (Other)
  Sender: FDA-Public Use
  Company Number: IE-BAYER-2015-300170

PATIENT
  Age: 68 Year
  Sex: Male

DRUGS (2)
  1. XOFIGO [Suspect]
     Active Substance: RADIUM RA-223 DICHLORIDE
     Dosage: Q1MON
     Route: 042
     Dates: start: 201504
  2. XOFIGO [Suspect]
     Active Substance: RADIUM RA-223 DICHLORIDE
     Dosage: Q1MON
     Route: 042

REACTIONS (4)
  - Metastases to central nervous system [None]
  - Aphasia [None]
  - Bone pain [None]
  - Metastases to meninges [None]

NARRATIVE: CASE EVENT DATE: 201505
